FAERS Safety Report 18253433 (Version 1)
Quarter: 2020Q3

REPORT INFORMATION
  Report Type: Report from Study
  Country: IT (occurrence: IT)
  Receive Date: 20200910
  Receipt Date: 20200910
  Transmission Date: 20201103
  Serious: Yes (Other)
  Sender: FDA-Public Use
  Company Number: IT-PFIZER INC-2020348768

PATIENT
  Age: 57 Year
  Sex: Male

DRUGS (3)
  1. FENTANYL. [Concomitant]
     Active Substance: FENTANYL
  2. LORAZEPAM. [Suspect]
     Active Substance: LORAZEPAM
  3. CLONAZEPAM. [Suspect]
     Active Substance: CLONAZEPAM

REACTIONS (4)
  - Feeling jittery [Unknown]
  - Malaise [Unknown]
  - Psychomotor hyperactivity [Unknown]
  - Pain [Unknown]

NARRATIVE: CASE EVENT DATE: 20200529
